FAERS Safety Report 14580603 (Version 1)
Quarter: 2018Q1

REPORT INFORMATION
  Report Type: Spontaneous
  Country: US (occurrence: US)
  Receive Date: 20180228
  Receipt Date: 20180228
  Transmission Date: 20180509
  Serious: No
  Sender: FDA-Public Use
  Company Number: US-INSYS THERAPEUTICS, INC-INS201702-000153

PATIENT
  Sex: Female

DRUGS (3)
  1. Z-PAKS [Concomitant]
  2. EMEND [Concomitant]
     Active Substance: APREPITANT
  3. SUBSYS [Suspect]
     Active Substance: FENTANYL
     Indication: PRODUCT USED FOR UNKNOWN INDICATION
     Route: 060

REACTIONS (3)
  - Pharyngitis streptococcal [Unknown]
  - Pyrexia [Unknown]
  - Bronchitis [Unknown]
